FAERS Safety Report 11060275 (Version 3)
Quarter: 2015Q3

REPORT INFORMATION
  Report Type: Report from Study
  Country: US (occurrence: US)
  Receive Date: 20150423
  Receipt Date: 20150717
  Transmission Date: 20151125
  Serious: Yes (Hospitalization, Other)
  Sender: FDA-Public Use
  Company Number: US-AMGEN-USASL2015029212

PATIENT
  Age: 75 Year
  Sex: Male

DRUGS (1)
  1. KYPROLIS [Suspect]
     Active Substance: CARFILZOMIB
     Indication: PLASMA CELL MYELOMA
     Dosage: UNK UNK, TWICE A WEEK
     Route: 042
     Dates: start: 201502

REACTIONS (7)
  - Asthenia [Not Recovered/Not Resolved]
  - Blood creatinine increased [Unknown]
  - Hypertension [Recovered/Resolved]
  - Blood pressure decreased [Not Recovered/Not Resolved]
  - Dialysis [Not Recovered/Not Resolved]
  - Malaise [Unknown]
  - Hospitalisation [Not Recovered/Not Resolved]

NARRATIVE: CASE EVENT DATE: 2015
